FAERS Safety Report 8927820 (Version 3)
Quarter: 2013Q1

REPORT INFORMATION
  Report Type: Report from Study
  Country: US (occurrence: US)
  Receive Date: 20121127
  Receipt Date: 20130111
  Transmission Date: 20140127
  Serious: Yes (Hospitalization, Other)
  Sender: FDA-Public Use
  Company Number: US-JNJFOC-20121111074

PATIENT
  Age: 16 Year
  Sex: Female
  Weight: 49.4 kg

DRUGS (2)
  1. REMICADE [Suspect]
     Indication: INFLAMMATORY BOWEL DISEASE
     Route: 042
     Dates: start: 20110104
  2. PEPCID [Concomitant]

REACTIONS (1)
  - Ovarian cyst [Recovered/Resolved]
